FAERS Safety Report 10010596 (Version 1)
Quarter: 2014Q1

REPORT INFORMATION
  Report Type: Spontaneous
  Country: US (occurrence: None)
  Receive Date: 20140312
  Receipt Date: 20140312
  Transmission Date: 20141002
  Serious: Yes (Hospitalization)
  Sender: FDA-Public Use
  Company Number: None

PATIENT
  Age: 61 Year
  Sex: Female

DRUGS (2)
  1. NEUPOGEN [Suspect]
     Indication: NEOPLASM MALIGNANT
     Dosage: 480 ,CG/0.8ML QD X 7 DAYS AFTER CHEMO.
     Route: 058
     Dates: start: 20140222
  2. DRONABINOL [Concomitant]

REACTIONS (1)
  - Investigation [None]
